FAERS Safety Report 24445556 (Version 1)
Quarter: 2024Q4

REPORT INFORMATION
  Report Type: Spontaneous
  Country: US (occurrence: US)
  Receive Date: 20241016
  Receipt Date: 20241016
  Transmission Date: 20250115
  Serious: Yes (Other)
  Sender: BAYER HEALTHCARE PHARMACEUTICALS INC.
  Company Number: US-BAYER-2024A145859

PATIENT
  Age: 74 Year
  Sex: Male

DRUGS (1)
  1. KOVALTRY [Suspect]
     Active Substance: ANTIHEMOPHILIC FACTOR, HUMAN RECOMBINANT
     Dosage: 1097 UNITS / 809 UNITS 1800 IU

REACTIONS (2)
  - Diabetes mellitus [None]
  - Hypertension [None]

NARRATIVE: CASE EVENT DATE: 20241007
